FAERS Safety Report 6626012-5 (Version None)
Quarter: 2010Q1

REPORT INFORMATION
  Report Type: 
  Country: None (occurrence: None)
  Receive Date: 20100310
  Receipt Date: 20100304
  Transmission Date: 20100710
  Serious: Yes (Hospitalization, Other)
  Sender: FDA-Public Use
  Company Number: US-TYCO HEALTHCARE/MALLINCKRODT-T200901392

PATIENT
  Sex: Male
  Weight: 78.912 kg

DRUGS (17)
  1. OPTIMARK [Suspect]
     Indication: NUCLEAR MAGNETIC RESONANCE IMAGING
     Dosage: UNK, SINGLE
     Dates: start: 20051017, end: 20051017
  2. OPTIMARK [Suspect]
     Dosage: UNK , SINGLE
     Dates: start: 20051017, end: 20051017
  3. OPTIMARK [Suspect]
     Dosage: UNK, SINGLE
     Dates: start: 20051017
  4. MAGNEVIST [Suspect]
     Indication: NUCLEAR MAGNETIC RESONANCE IMAGING
     Dosage: 15 ML, SINGLE
     Dates: start: 19990624, end: 19990624
  5. MAGNEVIST [Suspect]
     Dosage: UNK
     Dates: start: 20020828, end: 20020828
  6. MAGNEVIST [Suspect]
     Dosage: UNK
     Dates: start: 20020903, end: 20020903
  7. MAGNEVIST [Suspect]
     Dosage: UNK
     Dates: start: 20020927, end: 20020927
  8. MAGNEVIST [Suspect]
     Dosage: UNK
     Dates: start: 20021230, end: 20021230
  9. GADOLINIUM [Suspect]
     Indication: NUCLEAR MAGNETIC RESONANCE IMAGING
     Dosage: 20 ML, SINGLE
     Dates: start: 20041014, end: 20041014
  10. ALPRAZOLAM [Concomitant]
     Dosage: 0.5 MG,1 TABLET HS  PRN
  11. ZITHROMAX [Concomitant]
     Dosage: 500 MG, TRI-PAK
  12. OXYCODONE [Concomitant]
     Dosage: 5 MG, 1 TABLET EVERY 4-6 HRS PRN
  13. SULFAMETHOXAZOLE AND TRIMETHOPRIM [Concomitant]
     Dosage: 800/160 MGS 1 TABLET BID X 14 DAYS
  14. METRONIDAZOLE [Concomitant]
     Dosage: 500 MG, 1 TABLET TID X 10 DAYS
  15. CIPROFLOXACIN [Concomitant]
     Dosage: 500 MG, 1 TABLET TID X 10 DAYS
  16. ACETAMINOPHEN AND HYDROCODONE BITARTRATE [Concomitant]
     Dosage: 5/500 MGS, 1-2 TABLETS EVERY 6 HRS PRN
  17. HYDROCHLOROTHIAZIDE [Concomitant]
     Dosage: 25 MG, 1 TABLET DAILY

REACTIONS (27)
  - ACTIVITIES OF DAILY LIVING IMPAIRED [None]
  - ANXIETY [None]
  - CARDIAC FAILURE CONGESTIVE [None]
  - CLAVICLE FRACTURE [None]
  - CONJUNCTIVITIS [None]
  - CONSTIPATION [None]
  - DEPRESSION [None]
  - FALL [None]
  - FUNGAL INFECTION [None]
  - GAIT DISTURBANCE [None]
  - HYPOKALAEMIA [None]
  - INSOMNIA [None]
  - INTERSTITIAL LUNG DISEASE [None]
  - LEFT ATRIAL DILATATION [None]
  - LEFT VENTRICULAR HYPERTROPHY [None]
  - LEUKOCYTOSIS [None]
  - MELANOSIS COLI [None]
  - MUSCLE SPASMS [None]
  - NEPHROGENIC SYSTEMIC FIBROSIS [None]
  - NIGHT SWEATS [None]
  - POLYP [None]
  - PULMONARY VALVE INCOMPETENCE [None]
  - RENAL FAILURE ACUTE [None]
  - SENSORY LOSS [None]
  - SINUSITIS [None]
  - TRICUSPID VALVE INCOMPETENCE [None]
  - VERTIGO [None]
